FAERS Safety Report 12336929 (Version 2)
Quarter: 2016Q2

REPORT INFORMATION
  Report Type: Spontaneous
  Country: JP (occurrence: JP)
  Receive Date: 20160505
  Receipt Date: 20160610
  Transmission Date: 20160815
  Serious: Yes (Death)
  Sender: FDA-Public Use
  Company Number: JP-CELGENEUS-JPN-2016046721

PATIENT
  Sex: Female

DRUGS (1)
  1. VIDAZA [Suspect]
     Active Substance: AZACITIDINE
     Indication: MYELODYSPLASTIC SYNDROME
     Dosage: 75 MILLIGRAM
     Route: 058
     Dates: start: 201511, end: 201602

REACTIONS (1)
  - Myelodysplastic syndrome [Fatal]
